FAERS Safety Report 10881498 (Version 2)
Quarter: 2015Q1

REPORT INFORMATION
  Report Type: Spontaneous
  Country: JP (occurrence: JP)
  Receive Date: 20150303
  Receipt Date: 20150312
  Transmission Date: 20150721
  Serious: Yes (Hospitalization, Disabling)
  Sender: FDA-Public Use
  Company Number: JP-TEVA-2015-JP-000125J

PATIENT
  Age: 71 Year
  Sex: Male

DRUGS (1)
  1. RANITIDINE INJECTION SOLUTION 50MG ^TAIYO^ [Suspect]
     Active Substance: RANITIDINE HYDROCHLORIDE
     Indication: GASTROINTESTINAL HAEMORRHAGE
     Dosage: 100 MILLIGRAM DAILY;
     Route: 042
     Dates: end: 20150227

REACTIONS (1)
  - Altered state of consciousness [Not Recovered/Not Resolved]
